FAERS Safety Report 20414670 (Version 1)
Quarter: 2022Q1

REPORT INFORMATION
  Report Type: Spontaneous
  Country: US (occurrence: US)
  Receive Date: 20220202
  Receipt Date: 20220202
  Transmission Date: 20220423
  Serious: Yes (Other)
  Sender: FDA-Public Use
  Company Number: US-CELGENE-USA-20220108403

PATIENT
  Sex: Female
  Weight: 115.77 kg

DRUGS (2)
  1. REVLIMID [Suspect]
     Active Substance: LENALIDOMIDE
     Indication: Plasma cell myeloma
     Dosage: 10 MILLIGRAM
     Route: 048
     Dates: start: 202107
  2. METOPROLOL [Concomitant]
     Active Substance: METOPROLOL
     Indication: Pericardial effusion
     Route: 065

REACTIONS (1)
  - Hypothyroidism [Unknown]
